FAERS Safety Report 8061422-3 (Version None)
Quarter: 2012Q1

REPORT INFORMATION
  Report Type: 
  Country: None (occurrence: None)
  Receive Date: 20120120
  Receipt Date: 20111020
  Transmission Date: 20120608
  Serious: No
  Sender: FDA-Public Use
  Company Number: US-ALLERGAN-1113870US

PATIENT
  Age: 58 Year
  Sex: Female

DRUGS (3)
  1. RESTASIS [Suspect]
     Indication: DRY EYE
     Dosage: 2 GTT, BID
     Route: 047
     Dates: start: 20111016, end: 20111017
  2. SYSTANE ULTRA [Concomitant]
     Indication: DRY EYE
     Dosage: 1 GTT, TID
     Route: 047
     Dates: start: 20110101
  3. PREDNISOLONE ACETATE [Concomitant]
     Indication: STEROID THERAPY
     Dosage: 1 GTT, UNK
     Route: 047
     Dates: start: 20111016, end: 20111017

REACTIONS (3)
  - LIP SWELLING [None]
  - LIP DISORDER [None]
  - PARAESTHESIA ORAL [None]
